FAERS Safety Report 6992769-7 (Version None)
Quarter: 2010Q3

REPORT INFORMATION
  Report Type: 
  Country: None (occurrence: None)
  Receive Date: 20100917
  Receipt Date: 20100913
  Transmission Date: 20110219
  Serious: Yes (Death, Hospitalization, Disabling, Other)
  Sender: FDA-Public Use
  Company Number: A0865526A

PATIENT
  Age: 85 Year
  Sex: Male
  Weight: 58.2 kg

DRUGS (4)
  1. VOTRIENT [Suspect]
     Dosage: 800MG PER DAY
     Route: 048
     Dates: start: 20100428, end: 20100615
  2. SYNTHROID [Concomitant]
  3. PREDNISONE [Concomitant]
  4. MEGACE [Concomitant]

REACTIONS (8)
  - BLOOD CREATININE INCREASED [None]
  - HEPATIC FAILURE [None]
  - HYDRONEPHROSIS [None]
  - INTESTINAL OBSTRUCTION [None]
  - MALIGNANT NEOPLASM PROGRESSION [None]
  - RENAL CANCER [None]
  - RENAL FAILURE ACUTE [None]
  - URETERAL STENT INSERTION [None]
